FAERS Safety Report 16696918 (Version 2)
Quarter: 2019Q3

REPORT INFORMATION
  Report Type: Spontaneous
  Country: US (occurrence: US)
  Receive Date: 20190813
  Receipt Date: 20190820
  Transmission Date: 20191004
  Serious: Yes (Other)
  Sender: FDA-Public Use
  Company Number: US-PFIZER INC-2019342154

PATIENT
  Age: 8 Year
  Sex: Female
  Weight: 23.4 kg

DRUGS (1)
  1. GENOTROPIN MQ [Suspect]
     Active Substance: SOMATROPIN
     Indication: GROWTH HORMONE DEFICIENCY
     Dosage: 0.6 MG, DAILY
     Route: 058
     Dates: start: 201708, end: 20190803

REACTIONS (4)
  - Arthralgia [Not Recovered/Not Resolved]
  - Fatigue [Unknown]
  - Musculoskeletal pain [Not Recovered/Not Resolved]
  - Headache [Unknown]

NARRATIVE: CASE EVENT DATE: 20190803
